FAERS Safety Report 24749040 (Version 2)
Quarter: 2025Q3

REPORT INFORMATION
  Report Type: Spontaneous
  Country: US (occurrence: US)
  Receive Date: 20241218
  Receipt Date: 20250809
  Transmission Date: 20251021
  Serious: Yes (Other)
  Sender: ALEXION PHARMACEUTICALS
  Company Number: US-AstraZeneca-CH-00765475AP

PATIENT
  Age: 76 Year
  Sex: Female

DRUGS (2)
  1. SYMBICORT [Suspect]
     Active Substance: BUDESONIDE\FORMOTEROL FUMARATE DIHYDRATE
     Route: 065
  2. BUDESONIDE\FORMOTEROL [Suspect]
     Active Substance: BUDESONIDE\FORMOTEROL
     Dosage: 160 MICROGRAM, BID
     Route: 065

REACTIONS (6)
  - Deafness [Unknown]
  - Visual impairment [Unknown]
  - Device malfunction [Unknown]
  - Incorrect dose administered [Unknown]
  - Product dose omission issue [Unknown]
  - Wrong technique in device usage process [Unknown]

NARRATIVE: CASE EVENT DATE: 20241210
